FAERS Safety Report 7953972-2 (Version None)
Quarter: 2011Q4

REPORT INFORMATION
  Report Type: 
  Country: None (occurrence: None)
  Receive Date: 20111202
  Receipt Date: 20111202
  Transmission Date: 20120403
  Serious: Yes (Death, Life-Threatening, Other)
  Sender: FDA-Public Use
  Company Number: None

PATIENT
  Age: 45 Year
  Sex: Female
  Weight: 74 kg

DRUGS (2)
  1. TRASTUZUMAB [Concomitant]
     Indication: BREAST CANCER
     Dosage: 450 MG
     Dates: start: 20110824, end: 20111104
  2. VINORELBINE [Suspect]
     Indication: BREAST CANCER
     Dosage: 46 MG
     Dates: start: 20110914, end: 20111104

REACTIONS (1)
  - ACUTE HEPATIC FAILURE [None]
